FAERS Safety Report 25069903 (Version 1)
Quarter: 2025Q1

REPORT INFORMATION
  Report Type: Spontaneous
  Country: DE (occurrence: DE)
  Receive Date: 20250312
  Receipt Date: 20250312
  Transmission Date: 20250408
  Serious: Yes (Other)
  Sender: AMGEN
  Company Number: DE-AMK-285412

PATIENT
  Age: 75 Year
  Sex: Female

DRUGS (6)
  1. XGEVA [Suspect]
     Active Substance: DENOSUMAB
     Indication: Product used for unknown indication
     Route: 065
     Dates: start: 202101, end: 202407
  2. PANTOPRAZOLE SODIUM [Concomitant]
     Active Substance: PANTOPRAZOLE SODIUM
     Route: 065
  3. LETROZOLE [Concomitant]
     Active Substance: LETROZOLE
     Route: 065
  4. IBRANCE [Concomitant]
     Active Substance: PALBOCICLIB
     Route: 065
  5. Delix [Concomitant]
     Route: 065
  6. ASPIRIN [Concomitant]
     Active Substance: ASPIRIN
     Route: 065

REACTIONS (1)
  - Wound necrosis [Not Recovered/Not Resolved]

NARRATIVE: CASE EVENT DATE: 20230601
